FAERS Safety Report 6552925-9 (Version None)
Quarter: 2010Q1

REPORT INFORMATION
  Report Type: 
  Country: None (occurrence: None)
  Receive Date: 20100122
  Receipt Date: 20100111
  Transmission Date: 20100710
  Serious: Yes (Death)
  Sender: FDA-Public Use
  Company Number: 1000011347

PATIENT
  Age: 79 Year
  Sex: Female

DRUGS (2)
  1. MEMANTINE HCL [Suspect]
     Indication: DEMENTIA ALZHEIMER'S TYPE
     Dosage: (20 MG), ORAL
     Route: 048
     Dates: start: 20091009, end: 20100101
  2. ARICEPT [Suspect]
     Indication: DEMENTIA ALZHEIMER'S TYPE
     Dosage: (10 MG), ORAL
     Route: 048
     Dates: start: 20040210, end: 20100101

REACTIONS (1)
  - SOMATOFORM DISORDER [None]
